FAERS Safety Report 6069037-3 (Version None)
Quarter: 2009Q1

REPORT INFORMATION
  Report Type: 
  Country: None (occurrence: None)
  Receive Date: 20090203
  Receipt Date: 20090116
  Transmission Date: 20090719
  Serious: Yes (Hospitalization)
  Sender: FDA-Public Use
  Company Number: 6048293

PATIENT
  Age: 86 Year
  Sex: Female

DRUGS (11)
  1. LEVOTHYROXINE SODIUM [Suspect]
     Indication: HYPOTHYROIDISM
     Dosage: ORAL
     Route: 048
     Dates: start: 20080519, end: 20080608
  2. DOGMATIL (50 MG, CAPSULE) (SULPIRIDE) [Concomitant]
  3. KARDEGIC (75 MG, POWDER FOR ORAL SOLUTION) (ACETYLSALICYLATE LYSINE) [Concomitant]
  4. MONICOR LP(20 MG, CAPSULE) (ISOSORBIDE MONONITRATE) [Concomitant]
  5. RPEVISCAN(20 MG, TABLET) (FLUINIDIONE) [Concomitant]
  6. PROTELOS (2 GRAM, GRANULES FOR ORAL SUSPENSION) (STRONTIUM RANELATE) [Concomitant]
  7. SECTRAL(200 MG, COATED TABLET) (ACEBUTOLOL HYDROCHLORIDE) [Concomitant]
  8. TAREG(40 MG, CAPSULE) (VALSARTAN) [Concomitant]
  9. TRANSIPEG(MACROGOL) [Concomitant]
  10. ALPRAZOLAM [Concomitant]
  11. ISOCARD(SUBLINGUAL SPRAY) (ISOSORBIDE DINITRATE) [Concomitant]

REACTIONS (5)
  - ACUTE PULMONARY OEDEMA [None]
  - ATRIAL FIBRILLATION [None]
  - DEEP VEIN THROMBOSIS [None]
  - OVERDOSE [None]
  - PNEUMONIA [None]
